FAERS Safety Report 13276904 (Version 1)
Quarter: 2017Q1

REPORT INFORMATION
  Report Type: Spontaneous
  Country: US (occurrence: US)
  Receive Date: 20170228
  Receipt Date: 20170228
  Transmission Date: 20170428
  Serious: Yes (Hospitalization)
  Sender: FDA-Public Use
  Company Number: None

PATIENT

DRUGS (1)
  1. ACETAMINOPHEN-HYDROCODONE 5/325 [Suspect]
     Active Substance: ACETAMINOPHEN\HYDROCODONE

REACTIONS (3)
  - Hypotension [None]
  - Delirium [None]
  - Confusional state [None]

NARRATIVE: CASE EVENT DATE: 20160115
